FAERS Safety Report 7479473-6 (Version None)
Quarter: 2011Q2

REPORT INFORMATION
  Report Type: 
  Country: None (occurrence: None)
  Receive Date: 20110513
  Receipt Date: 20110509
  Transmission Date: 20111010
  Serious: Yes (Other)
  Sender: FDA-Public Use
  Company Number: US-AMGEN-USASP2011012095

PATIENT
  Age: 42 Year
  Sex: Female

DRUGS (6)
  1. DANAZOL [Concomitant]
  2. NPLATE [Suspect]
     Indication: IDIOPATHIC THROMBOCYTOPENIC PURPURA
     Dosage: 1 A?G/KG, UNK
     Dates: start: 20101025, end: 20101129
  3. IMMUNOGLOBULINS [Concomitant]
  4. ANTI-D                             /00016801/ [Concomitant]
  5. CORTICOSTEROIDS [Concomitant]
  6. RITUXIMAB [Concomitant]

REACTIONS (5)
  - DRY MOUTH [None]
  - RETROPERITONEAL LYMPHADENOPATHY [None]
  - MUSCULOSKELETAL PAIN [None]
  - PROCEDURAL PAIN [None]
  - SPLENOMEGALY [None]
